FAERS Safety Report 10072478 (Version 1)
Quarter: 2014Q2

REPORT INFORMATION
  Report Type: Spontaneous
  Country: US (occurrence: None)
  Receive Date: 20140410
  Receipt Date: 20140410
  Transmission Date: 20141212
  Serious: Yes (Hospitalization)
  Sender: FDA-Public Use
  Company Number: None

PATIENT
  Age: 81 Year
  Sex: Male
  Weight: 79.6 kg

DRUGS (2)
  1. WARFARIN [Suspect]
     Indication: ATRIAL FIBRILLATION
     Dosage: 5 MG OTHER PO
     Route: 048
     Dates: start: 20140320, end: 20140325
  2. IODIXANOL [Suspect]
     Indication: CARDIAC OPERATION
     Route: 042
     Dates: start: 20140220, end: 20140220

REACTIONS (10)
  - Anal haemorrhage [None]
  - Anaemia [None]
  - Renal failure acute [None]
  - Renal transplant [None]
  - Hypovolaemia [None]
  - Vision blurred [None]
  - Gastric haemorrhage [None]
  - Nephropathy toxic [None]
  - Toxicity to various agents [None]
  - Complications of transplanted kidney [None]
